FAERS Safety Report 6774642-2 (Version None)
Quarter: 2010Q2

REPORT INFORMATION
  Report Type: 
  Country: None (occurrence: None)
  Receive Date: 20100617
  Receipt Date: 20100609
  Transmission Date: 20101027
  Serious: Yes (Life-Threatening, Hospitalization, Other)
  Sender: FDA-Public Use
  Company Number: FR-ABBOTT-09P-056-0497925-00

PATIENT
  Age: 39 Year
  Sex: Female

DRUGS (2)
  1. MONOZECLAR TABLETS [Suspect]
     Indication: DRUG USE FOR UNKNOWN INDICATION
     Dates: start: 20080501
  2. HELICIDINE [Suspect]
     Indication: DRUG USE FOR UNKNOWN INDICATION
     Dates: start: 20080501

REACTIONS (7)
  - ANAPHYLACTIC REACTION [None]
  - HYPOTENSION [None]
  - MALAISE [None]
  - OEDEMA PERIPHERAL [None]
  - OROPHARYNGEAL DISCOMFORT [None]
  - PRURITUS GENERALISED [None]
  - RESPIRATORY DISORDER [None]
